FAERS Safety Report 7086601-3 (Version None)
Quarter: 2010Q4

REPORT INFORMATION
  Report Type: 
  Country: None (occurrence: None)
  Receive Date: 20101105
  Receipt Date: 20101102
  Transmission Date: 20110411
  Serious: Yes (Death, Hospitalization, Other)
  Sender: FDA-Public Use
  Company Number: PHHO2008US07334

PATIENT
  Sex: Male

DRUGS (1)
  1. CERTICAN [Suspect]
     Indication: HEART TRANSPLANT
     Dosage: 0.5 MG, BID
     Route: 048
     Dates: start: 20080106, end: 20080306

REACTIONS (18)
  - ABDOMINAL PAIN [None]
  - BACTERIAL INFECTION [None]
  - CANDIDIASIS [None]
  - CARDIAC ARREST [None]
  - DYSPNOEA [None]
  - ENTEROCOCCAL INFECTION [None]
  - ESCHERICHIA INFECTION [None]
  - HYPOTENSION [None]
  - HYPOXIA [None]
  - INTESTINAL DILATATION [None]
  - OEDEMA PERIPHERAL [None]
  - PNEUMONIA NECROTISING [None]
  - PNEUMOTHORAX [None]
  - PULMONARY HAEMORRHAGE [None]
  - RESPIRATORY FAILURE [None]
  - SEPSIS [None]
  - TRACHEOSTOMY [None]
  - VENOUS THROMBOSIS [None]
